FAERS Safety Report 21952758 (Version 1)
Quarter: 2023Q1

REPORT INFORMATION
  Report Type: Spontaneous
  Country: US (occurrence: US)
  Receive Date: 20230204
  Receipt Date: 20230204
  Transmission Date: 20230418
  Serious: No
  Sender: FDA-Public Use
  Company Number: US-SA-SAC20230202000836

PATIENT
  Age: 60 Year
  Sex: Female
  Weight: 54.431 kg

DRUGS (4)
  1. DUPIXENT [Suspect]
     Active Substance: DUPILUMAB
     Dosage: 300 MG, QOW
     Route: 058
     Dates: start: 202209
  2. ATIVAN [Concomitant]
     Active Substance: LORAZEPAM
  3. WELLBUTRIN XL [Concomitant]
     Active Substance: BUPROPION HYDROCHLORIDE
     Dosage: 300MG 24 H
  4. LAMOTRIGINE [Concomitant]
     Active Substance: LAMOTRIGINE

REACTIONS (2)
  - Alopecia [Not Recovered/Not Resolved]
  - Eyelids pruritus [Recovering/Resolving]

NARRATIVE: CASE EVENT DATE: 20220901
